FAERS Safety Report 11362412 (Version 1)
Quarter: 2015Q3

REPORT INFORMATION
  Report Type: Spontaneous
  Country: US (occurrence: US)
  Receive Date: 20150810
  Receipt Date: 20150810
  Transmission Date: 20151125
  Serious: No
  Sender: FDA-Public Use
  Company Number: GXBR2015US001649

PATIENT
  Age: 43 Year
  Sex: Female
  Weight: 79.37 kg

DRUGS (6)
  1. LEVOFLOXACIN. [Suspect]
     Active Substance: LEVOFLOXACIN
     Indication: STREPTOCOCCAL INFECTION
     Dosage: 750 MG, QD
     Route: 048
     Dates: start: 20150625, end: 20150702
  2. ALBUTEROL. [Concomitant]
     Active Substance: ALBUTEROL
     Indication: INFLUENZA
  3. CODEINE SYRUP [Concomitant]
     Indication: STREPTOCOCCAL INFECTION
     Dosage: UNK DF, UNK
     Dates: start: 201506
  4. ALBUTEROL. [Concomitant]
     Active Substance: ALBUTEROL
     Indication: STREPTOCOCCAL INFECTION
     Dosage: UNK DF, UNK
     Route: 055
     Dates: start: 201506
  5. CODEINE SYRUP [Concomitant]
     Indication: INFLUENZA
  6. LEVOFLOXACIN. [Suspect]
     Active Substance: LEVOFLOXACIN
     Indication: INFLUENZA

REACTIONS (1)
  - Tendonitis [Recovering/Resolving]

NARRATIVE: CASE EVENT DATE: 20150627
